FAERS Safety Report 9297982 (Version 2)
Quarter: 2013Q2

REPORT INFORMATION
  Report Type: Spontaneous
  Country: US (occurrence: US)
  Receive Date: 20130520
  Receipt Date: 20130617
  Transmission Date: 20140414
  Serious: Yes (Other)
  Sender: FDA-Public Use
  Company Number: US-PFIZER INC-2013151903

PATIENT
  Age: 40 Year
  Sex: Female
  Weight: 56 kg

DRUGS (4)
  1. XELJANZ [Suspect]
     Indication: RHEUMATOID ARTHRITIS
     Dosage: 5 MG, 2X/DAY (10 MG/D)
     Route: 048
     Dates: start: 20130305
  2. XELJANZ [Suspect]
     Dosage: 5 MG, UNK
     Route: 048
     Dates: start: 20130605
  3. MELOXICAM [Concomitant]
     Dosage: UNK
  4. METHOTREXATE [Concomitant]
     Dosage: UNK

REACTIONS (4)
  - Duodenal ulcer [Unknown]
  - Leukopenia [Unknown]
  - Anaemia [Unknown]
  - Blood bilirubin increased [Unknown]
